FAERS Safety Report 15506011 (Version 1)
Quarter: 2018Q4

REPORT INFORMATION
  Report Type: Spontaneous
  Country: US (occurrence: US)
  Receive Date: 20181010
  Receipt Date: 20181010
  Transmission Date: 20190205
  Serious: Yes (Disabling, Other)
  Sender: FDA-Public Use
  Company Number: None

PATIENT
  Age: 62 Year
  Sex: Female

DRUGS (16)
  1. LISINOPRIL. [Concomitant]
     Active Substance: LISINOPRIL
  2. ALEVE [Concomitant]
     Active Substance: NAPROXEN SODIUM
  3. ALBUTEROL NEB. [Concomitant]
  4. SPIRIVA [Suspect]
     Active Substance: TIOTROPIUM BROMIDE MONOHYDRATE
     Indication: CHRONIC OBSTRUCTIVE PULMONARY DISEASE
     Dosage: ?          QUANTITY:1 DF DOSAGE FORM;?
     Route: 048
     Dates: start: 20120324, end: 20120416
  5. TYLENOL ARTHRITIS PAIN [Concomitant]
     Active Substance: ACETAMINOPHEN
  6. AMLODIPINE [Concomitant]
     Active Substance: AMLODIPINE BESYLATE
  7. POT CL MICRO [Concomitant]
  8. SEREVENT DIS AER [Concomitant]
  9. TRAVATAN Z [Concomitant]
     Active Substance: TRAVOPROST
  10. MELOXICAM. [Concomitant]
     Active Substance: MELOXICAM
  11. PROAIR HFA AER [Concomitant]
  12. TYLENOL [Concomitant]
     Active Substance: ACETAMINOPHEN
  13. VITAMIN D [Concomitant]
     Active Substance: CHOLECALCIFEROL
  14. SPIRIVA [Suspect]
     Active Substance: TIOTROPIUM BROMIDE MONOHYDRATE
     Indication: ASTHMA
     Dosage: ?          QUANTITY:1 DF DOSAGE FORM;?
     Route: 048
     Dates: start: 20120324, end: 20120416
  15. COMBIVENT AER [Concomitant]
  16. HYDROCHLOROT [Concomitant]
     Active Substance: HYDROCHLOROTHIAZIDE

REACTIONS (5)
  - Retinal drusen [None]
  - Macular fibrosis [None]
  - Chorioretinal atrophy [None]
  - Open angle glaucoma [None]
  - Condition aggravated [None]

NARRATIVE: CASE EVENT DATE: 20120324
